FAERS Safety Report 10869516 (Version 1)
Quarter: 2015Q1

REPORT INFORMATION
  Report Type: Spontaneous
  Country: JP (occurrence: JP)
  Receive Date: 20150226
  Receipt Date: 20150226
  Transmission Date: 20150721
  Serious: Yes (Other)
  Sender: FDA-Public Use
  Company Number: JP-GLAXOSMITHKLINE-JP2015JPN007406

PATIENT
  Age: 15 Year
  Sex: Male

DRUGS (5)
  1. TAVEGYL [Concomitant]
     Active Substance: CLEMASTINE FUMARATE
     Dosage: 1 MG, BID
     Dates: start: 20150119
  2. BROMHEXINE HYDROCHLORIDE [Concomitant]
     Active Substance: BROMHEXINE HYDROCHLORIDE
     Dosage: 4 MG, TID
     Dates: start: 20150119
  3. RELENZA [Suspect]
     Active Substance: ZANAMIVIR
     Indication: INFLUENZA
     Dosage: 5 MG, BID
     Route: 055
     Dates: start: 20150119, end: 20150121
  4. RESPLEN [Concomitant]
     Active Substance: EPRAZINONE
     Dosage: 30 MG, TID
     Dates: start: 20150119
  5. CALONAL [Concomitant]
     Active Substance: ACETAMINOPHEN
     Dosage: 300 MG, PRN

REACTIONS (2)
  - Abnormal behaviour [Recovered/Resolved]
  - Illusion [Unknown]

NARRATIVE: CASE EVENT DATE: 20150120
